FAERS Safety Report 5726237-7 (Version None)
Quarter: 2008Q2

REPORT INFORMATION
  Report Type: 
  Country: None (occurrence: None)
  Receive Date: 20080502
  Receipt Date: 20080502
  Transmission Date: 20081010
  Serious: Yes (Life-Threatening, Hospitalization, Other)
  Sender: FDA-Public Use
  Company Number: None

PATIENT
  Age: 50 Year
  Sex: Female

DRUGS (1)
  1. HEPARIN [Suspect]
     Indication: CARDIAC OPERATION
     Dosage: IRRIGATION ONE TIME ORDER INTRAPERICARDIAL
     Route: 032
     Dates: start: 20080214, end: 20080414

REACTIONS (6)
  - ASCITES [None]
  - CIRCULATORY COLLAPSE [None]
  - HYPOTENSION [None]
  - LYMPHADENOPATHY [None]
  - PHARMACEUTICAL PRODUCT COMPLAINT [None]
  - RASH [None]
